FAERS Safety Report 7399577-6 (Version None)
Quarter: 2011Q2

REPORT INFORMATION
  Report Type: 
  Country: None (occurrence: None)
  Receive Date: 20110407
  Receipt Date: 20110321
  Transmission Date: 20111010
  Serious: Yes (Other)
  Sender: FDA-Public Use
  Company Number: US-BAYER-2010-001217

PATIENT
  Sex: Female
  Weight: 53.515 kg

DRUGS (5)
  1. NORTRIPTYLINE HCL [Concomitant]
  2. YAZ [Suspect]
  3. TYLENOL PM [Concomitant]
     Indication: MIGRAINE
     Dosage: 2 TABLETS, PRN
  4. DARVOCET [Concomitant]
  5. NORCO [Concomitant]

REACTIONS (2)
  - CHOLELITHIASIS [None]
  - GALLBLADDER INJURY [None]
